FAERS Safety Report 14917769 (Version 1)
Quarter: 2018Q2

REPORT INFORMATION
  Report Type: Spontaneous
  Country: US (occurrence: US)
  Receive Date: 20180501
  Receipt Date: 20180501
  Transmission Date: 20180711
  Serious: Yes (Hospitalization)
  Sender: FDA-Public Use
  Company Number: None

PATIENT
  Age: 62 Year
  Sex: Female
  Weight: 81.19 kg

DRUGS (6)
  1. RISPERIDONE 2MG TABLETS ZYDUS PHARM [Suspect]
     Active Substance: RISPERIDONE
  2. RISPERIDONE 3MG [Suspect]
     Active Substance: RISPERIDONE
  3. HALOPERIDOL DECONATE 100 [Suspect]
     Active Substance: HALOPERIDOL DECANOATE
  4. HALOPERIDOL 10MG [Suspect]
     Active Substance: HALOPERIDOL
     Dosage: ?          QUANTITY:4 DF DOSAGE FORM;?
     Route: 048
     Dates: start: 19910417
  5. CENTRUM AULTD VITAMINS [Concomitant]
  6. SELENIUM/DRAMAMINE [Concomitant]

REACTIONS (2)
  - Weight increased [None]
  - Alopecia [None]

NARRATIVE: CASE EVENT DATE: 19910417
